FAERS Safety Report 9646484 (Version 2)
Quarter: 2013Q4

REPORT INFORMATION
  Report Type: Report from Study
  Country: BR (occurrence: BR)
  Receive Date: 20131025
  Receipt Date: 20131025
  Transmission Date: 20140711
  Serious: Yes (Disabling, Other)
  Sender: FDA-Public Use
  Company Number: BR-ABBVIE-13P-020-1087547-00

PATIENT
  Age: 45 Year
  Sex: Male
  Weight: 84 kg

DRUGS (7)
  1. HUMIRA [Suspect]
     Indication: PSORIATIC ARTHROPATHY
     Dosage: DAY 0
     Route: 058
     Dates: start: 201303
  2. HUMIRA [Suspect]
     Dosage: DAY 7
     Route: 058
  3. HUMIRA [Suspect]
     Route: 058
     Dates: start: 20130201, end: 201307
  4. HUMIRA [Suspect]
     Route: 058
     Dates: start: 201308
  5. METHOTREXATE [Concomitant]
     Indication: PSORIATIC ARTHROPATHY
     Route: 048
     Dates: start: 2012
  6. METHOTREXATE [Concomitant]
     Indication: PSORIASIS
     Route: 048
     Dates: start: 2009
  7. INDOCID [Concomitant]
     Indication: PAIN
     Route: 048
     Dates: start: 20130520, end: 201306

REACTIONS (11)
  - Bone cyst [Unknown]
  - Osteonecrosis [Unknown]
  - Abasia [Not Recovered/Not Resolved]
  - Osteonecrosis [Unknown]
  - Groin pain [Unknown]
  - Pain in extremity [Not Recovered/Not Resolved]
  - Drug ineffective [Unknown]
  - Pain in extremity [Not Recovered/Not Resolved]
  - Arthralgia [Not Recovered/Not Resolved]
  - Gait disturbance [Not Recovered/Not Resolved]
  - Gait disturbance [Not Recovered/Not Resolved]
